FAERS Safety Report 9166066 (Version 2)
Quarter: 2013Q1

REPORT INFORMATION
  Report Type: Spontaneous
  Country: FR (occurrence: FR)
  Receive Date: 20130315
  Receipt Date: 20130325
  Transmission Date: 20140127
  Serious: Yes (Hospitalization)
  Sender: FDA-Public Use
  Company Number: FR-PFIZER INC-2013086285

PATIENT
  Age: 76 Year
  Sex: Female

DRUGS (5)
  1. INIPOMP [Suspect]
     Dosage: 40 MG, UNK
     Route: 048
     Dates: start: 201204
  2. HYDROCHLOROTHIAZIDE/OLMESARTAN MEDOXOMIL [Suspect]
     Dosage: 20 MG/25 MG
     Route: 048
     Dates: start: 201204
  3. PRADAXA [Suspect]
     Dosage: 150 MG, 2X/DAY
     Route: 048
     Dates: start: 201208
  4. FLECAINE [Concomitant]
     Dosage: 200 MG
     Route: 048
     Dates: start: 2008
  5. CRESTOR [Concomitant]
     Dosage: 10 MG, 1X/DAY
     Route: 048
     Dates: start: 2008

REACTIONS (3)
  - Anaemia [Recovering/Resolving]
  - Myocardial ischaemia [None]
  - Angina unstable [None]
